FAERS Safety Report 8954794 (Version 2)
Quarter: 2012Q4

REPORT INFORMATION
  Report Type: Report from Study
  Country: US (occurrence: US)
  Receive Date: 20121210
  Receipt Date: 20121217
  Transmission Date: 20130627
  Serious: Yes (Hospitalization)
  Sender: FDA-Public Use
  Company Number: US-JNJFOC-20121201687

PATIENT
  Age: 16 Year
  Sex: Female
  Weight: 56 kg

DRUGS (16)
  1. REMICADE [Suspect]
     Indication: INFLAMMATORY BOWEL DISEASE
     Route: 042
     Dates: start: 20071114
  2. SINGULAIR [Concomitant]
  3. METHOTREXATE [Concomitant]
  4. TRAMADOL [Concomitant]
  5. DOVONEX [Concomitant]
  6. BACTROBAN [Concomitant]
  7. PROTONIX [Concomitant]
  8. FLAGYL [Concomitant]
  9. FOLIC ACID [Concomitant]
  10. ALL OTHER THERAPEUTIC PRODUCT [Concomitant]
  11. AMITRIPTYLINE [Concomitant]
  12. VITAMIN D [Concomitant]
  13. FLORASTOR [Concomitant]
  14. ALBUTEROL [Concomitant]
  15. MULTIVIT [Concomitant]
  16. OMEGA 3 FATTY ACID [Concomitant]

REACTIONS (1)
  - Abdominal pain [Recovered/Resolved]
